FAERS Safety Report 4621874-5 (Version None)
Quarter: 2005Q1

REPORT INFORMATION
  Report Type: 
  Country: None (occurrence: None)
  Receive Date: 20050329
  Receipt Date: 20050318
  Transmission Date: 20050727
  Serious: Yes (Other)
  Sender: FDA-Public Use
  Company Number: DE-JNJFOC-20040905391

PATIENT
  Sex: Female

DRUGS (4)
  1. ORTHO EVRA [Suspect]
     Indication: CONTRACEPTION
     Route: 062
  2. MYFORTIC [Concomitant]
     Route: 049
  3. MYFORTIC [Concomitant]
     Indication: RENAL TRANSPLANT
     Route: 049
  4. PROGRAF [Concomitant]
     Indication: RENAL TRANSPLANT
     Route: 049

REACTIONS (5)
  - ABDOMINAL PAIN [None]
  - DIARRHOEA [None]
  - DISEASE PROGRESSION [None]
  - ENDOMETRIOSIS [None]
  - MENSTRUAL DISORDER [None]
